FAERS Safety Report 7299565-4 (Version None)
Quarter: 2011Q1

REPORT INFORMATION
  Report Type: 
  Country: None (occurrence: None)
  Receive Date: 20110209
  Receipt Date: 20110130
  Transmission Date: 20110831
  Serious: Yes (Other)
  Sender: FDA-Public Use
  Company Number: 2010SP039307

PATIENT
  Age: 39 Year
  Sex: Female
  Weight: 55 kg

DRUGS (3)
  1. REBETOL [Suspect]
     Indication: HEPATITIS C
     Dosage: 200 MG
     Dates: start: 20100115, end: 20101203
  2. PEG-INTRON [Suspect]
  3. PEG-INTRON [Suspect]
     Indication: HEPATITIS C
     Dosage: 100 MCG;QW;SC; 0.4 ML;QW;SC
     Route: 058
     Dates: start: 20100115, end: 20101203

REACTIONS (10)
  - RASH [None]
  - PRURITUS [None]
  - HYPERTHYROIDISM [None]
  - BLOOD THYROID STIMULATING HORMONE DECREASED [None]
  - XEROSIS [None]
  - WEIGHT DECREASED [None]
  - ALOPECIA [None]
  - NEPHROGENIC DIABETES INSIPIDUS [None]
  - HAEMANGIOMA OF LIVER [None]
  - PROTEINURIA [None]
